FAERS Safety Report 18371422 (Version 1)
Quarter: 2020Q4

REPORT INFORMATION
  Report Type: Other
  Country: CA (occurrence: CA)
  Receive Date: 20201012
  Receipt Date: 20201012
  Transmission Date: 20210114
  Serious: Yes (Hospitalization, Other)
  Sender: FDA-Public Use
  Company Number: CA-APOTEX-2020AP019394

PATIENT
  Age: 20 Year
  Sex: Male

DRUGS (4)
  1. CEFTRIAXONE SODIUM. [Suspect]
     Active Substance: CEFTRIAXONE SODIUM
     Indication: TENOSYNOVITIS
     Dosage: 1 DOSAGE FORM, TOTAL
     Route: 065
  2. DOXYCYCLINE. [Suspect]
     Active Substance: DOXYCYCLINE
     Indication: TENOSYNOVITIS
     Dosage: UNK
     Route: 065
  3. TRIMETHOPRIM/SULFAMETHOXAZOLE [Suspect]
     Active Substance: SULFAMETHOXAZOLE\TRIMETHOPRIM
     Indication: TENOSYNOVITIS
     Dosage: UNK
     Route: 065
  4. VANCOMYCIN HYDROCHLORIDE. [Suspect]
     Active Substance: VANCOMYCIN HYDROCHLORIDE
     Indication: TENOSYNOVITIS
     Dosage: 1 DOSAGE FORM, TOTAL
     Route: 065

REACTIONS (2)
  - Human herpesvirus 6 infection [Recovered/Resolved]
  - Drug reaction with eosinophilia and systemic symptoms [Recovered/Resolved]
